FAERS Safety Report 22632455 (Version 1)
Quarter: 2023Q2

REPORT INFORMATION
  Report Type: Spontaneous
  Country: US (occurrence: US)
  Receive Date: 20230623
  Receipt Date: 20230623
  Transmission Date: 20230722
  Serious: Yes (Other)
  Sender: FDA-Public Use
  Company Number: US-002147023-NVSC2023US138159

PATIENT
  Age: 76 Year
  Sex: Male

DRUGS (3)
  1. VORICONAZOLE [Suspect]
     Active Substance: VORICONAZOLE
     Indication: Tracheobronchitis
     Dosage: 200 MG, BID
     Route: 048
  2. VORICONAZOLE [Suspect]
     Active Substance: VORICONAZOLE
     Indication: Aspergillus infection
  3. SUNITINIB [Concomitant]
     Active Substance: SUNITINIB
     Indication: Renal cell carcinoma
     Dosage: UNK
     Route: 065

REACTIONS (3)
  - Aspergillus infection [Unknown]
  - Tracheobronchitis [Unknown]
  - Condition aggravated [Unknown]
